FAERS Safety Report 9769421 (Version 2)
Quarter: 2013Q4

REPORT INFORMATION
  Report Type: Report from Study
  Country: CA (occurrence: CA)
  Receive Date: 20131218
  Receipt Date: 20131223
  Transmission Date: 20140711
  Serious: Yes (Other)
  Sender: FDA-Public Use
  Company Number: PHHY2013CA147958

PATIENT
  Age: 38 Year
  Sex: Female

DRUGS (1)
  1. EXTAVIA [Suspect]
     Indication: RELAPSING-REMITTING MULTIPLE SCLEROSIS
     Dosage: UNK UKN, UNK
     Route: 058
     Dates: start: 2012

REACTIONS (10)
  - Multiple sclerosis relapse [Recovering/Resolving]
  - Expanded disability status scale score increased [Recovering/Resolving]
  - Brain stem stroke [Recovering/Resolving]
  - Brain injury [Recovering/Resolving]
  - Spinal cord injury [Recovering/Resolving]
  - Brain stem syndrome [Recovering/Resolving]
  - Facial paresis [Recovering/Resolving]
  - Myokymia [Recovering/Resolving]
  - Horner^s syndrome [Recovering/Resolving]
  - Therapeutic response decreased [Recovering/Resolving]
